FAERS Safety Report 11155537 (Version 1)
Quarter: 2015Q2

REPORT INFORMATION
  Report Type: Spontaneous
  Country: US (occurrence: US)
  Receive Date: 20150602
  Receipt Date: 20150602
  Transmission Date: 20150821
  Serious: Yes (Hospitalization)
  Sender: FDA-Public Use
  Company Number: US-PFIZER INC-2015181767

PATIENT
  Age: 83 Year
  Sex: Male

DRUGS (2)
  1. NAPROSYN [Concomitant]
     Active Substance: NAPROXEN
     Dosage: UNK
  2. CELEBREX [Suspect]
     Active Substance: CELECOXIB
     Indication: ARTHRITIS
     Dosage: 200 MG, DAILY

REACTIONS (7)
  - Atrial fibrillation [Unknown]
  - Dyspnoea [Unknown]
  - Abdominal distension [Unknown]
  - Feeling hot [Unknown]
  - Flushing [Unknown]
  - Feeling abnormal [Unknown]
  - Fluid imbalance [Unknown]
